FAERS Safety Report 16525534 (Version 2)
Quarter: 2019Q3

REPORT INFORMATION
  Report Type: Spontaneous
  Country: IE (occurrence: IE)
  Receive Date: 20190702
  Receipt Date: 20190822
  Transmission Date: 20191004
  Serious: Yes (Hospitalization)
  Sender: FDA-Public Use
  Company Number: IE-CELLTRION INC.-2019IE022175

PATIENT

DRUGS (1)
  1. INFLIXIMAB (UNKNOWN) [Suspect]
     Active Substance: INFLIXIMAB
     Indication: COLITIS ULCERATIVE
     Dosage: UNKNOWN (INFUSION)
     Route: 065

REACTIONS (13)
  - Pericardial effusion [Unknown]
  - Cardiac tamponade [Recovered/Resolved]
  - Pyrexia [Unknown]
  - Colitis [Unknown]
  - Heart rate increased [Unknown]
  - Blood pressure decreased [Unknown]
  - Chills [Unknown]
  - Atrial fibrillation [Recovered/Resolved]
  - White blood cell count increased [Unknown]
  - Inflammatory marker increased [Unknown]
  - Dyspnoea exertional [Unknown]
  - Sepsis [Unknown]
  - Chest pain [Unknown]
